FAERS Safety Report 21092869 (Version 1)
Quarter: 2022Q3

REPORT INFORMATION
  Report Type: Spontaneous
  Country: CN (occurrence: CN)
  Receive Date: 20220718
  Receipt Date: 20220718
  Transmission Date: 20221026
  Serious: Yes (Other)
  Sender: FDA-Public Use
  Company Number: CN-SUN PHARMACEUTICAL INDUSTRIES LTD-2022R1-344378

PATIENT
  Age: 54 Year
  Sex: Male

DRUGS (3)
  1. ESOMEPRAZOLE [Suspect]
     Active Substance: ESOMEPRAZOLE
     Indication: Infection
     Dosage: 40 MILLIGRAM, QID
     Route: 042
  2. REBAMIPIDE [Suspect]
     Active Substance: REBAMIPIDE
     Indication: Infection
     Dosage: 100 MILLIGRAM, TID
     Route: 048
  3. SUCRALFATE [Suspect]
     Active Substance: SUCRALFATE
     Indication: Infection
     Dosage: 10 MILLILITER, BID
     Route: 048

REACTIONS (1)
  - Condition aggravated [Unknown]
